FAERS Safety Report 5814675-3 (Version None)
Quarter: 2008Q3

REPORT INFORMATION
  Report Type: 
  Country: None (occurrence: None)
  Receive Date: 20080718
  Receipt Date: 20080306
  Transmission Date: 20090109
  Serious: No
  Sender: FDA-Public Use
  Company Number: US-KINGPHARMUSA00001-K200800293

PATIENT

DRUGS (4)
  1. LEVOXYL [Suspect]
     Indication: HYPOTHYROIDISM
     Dates: end: 20080201
  2. LEVOXYL [Suspect]
     Dosage: 75 MCG, QD
     Route: 048
     Dates: start: 20080215, end: 20080228
  3. LEVOXYL [Suspect]
     Dosage: 100 MCG, QD
     Route: 048
     Dates: start: 20080229
  4. INHALERS FOR ASTHMA [Concomitant]
     Indication: ASTHMA
     Dosage: UNK, QD

REACTIONS (3)
  - HEPATIC PAIN [None]
  - RENAL PAIN [None]
  - SWELLING FACE [None]
